FAERS Safety Report 9233613 (Version 3)
Quarter: 2013Q3

REPORT INFORMATION
  Report Type: Report from Study
  Country: JP (occurrence: JP)
  Receive Date: 20130416
  Receipt Date: 20130716
  Transmission Date: 20140515
  Serious: Yes (Hospitalization)
  Sender: FDA-Public Use
  Company Number: JP-AMGEN-JPNCT2013026138

PATIENT
  Age: 71 Year
  Sex: Male
  Weight: 70 kg

DRUGS (13)
  1. DARBEPOETIN ALFA [Suspect]
     Indication: NEPHROGENIC ANAEMIA
     Dosage: 30 MUG, Q2WK
     Route: 058
     Dates: start: 20110303, end: 20110609
  2. DARBEPOETIN ALFA [Suspect]
     Dosage: 40 MUG, Q2WK
     Route: 058
     Dates: start: 20110623, end: 20110707
  3. DARBEPOETIN ALFA [Suspect]
     Dosage: 60 MUG, Q2WK
     Route: 058
     Dates: start: 20110721, end: 20120830
  4. DARBEPOETIN ALFA [Suspect]
     Dosage: 90 MUG, Q2WK
     Route: 058
     Dates: start: 20120913, end: 20121025
  5. AMLODIN [Suspect]
     Dosage: 5 MG, BID
     Route: 048
     Dates: start: 20101021
  6. CARDENALIN [Suspect]
     Dosage: 1 MG, BID
     Route: 048
     Dates: start: 20101118
  7. FLUITRAN [Suspect]
     Dosage: 2 MG, QD
     Route: 048
     Dates: start: 20101021
  8. LASIX [Suspect]
     Dosage: 40 MG, BID
     Route: 048
     Dates: start: 20101021
  9. SELOKEN [Concomitant]
     Dosage: UNK
  10. ALLOZYM [Concomitant]
     Dosage: UNK
  11. ARGAMATE [Concomitant]
     Dosage: UNK
  12. KREMEZIN [Concomitant]
     Dosage: UNK
  13. D ALFA [Concomitant]
     Dosage: UNK

REACTIONS (2)
  - Atrial fibrillation [Unknown]
  - Hypocalcaemia [Recovered/Resolved]
